FAERS Safety Report 7989032-4 (Version None)
Quarter: 2011Q4

REPORT INFORMATION
  Report Type: 
  Country: None (occurrence: None)
  Receive Date: 20111007
  Receipt Date: 20110804
  Transmission Date: 20120403
  Serious: No
  Sender: FDA-Public Use
  Company Number: 2011HGS-002460

PATIENT
  Age: 43 Year
  Sex: Female
  Weight: 39.9165 kg

DRUGS (7)
  1. SEPTRA (BACTRIM) (SULFAMETHOXAZOLE, TRIMETHOPRIM) [Concomitant]
  2. CELLCEPT [Concomitant]
  3. BENLYSTA [Suspect]
     Indication: SYSTEMIC LUPUS ERYTHEMATOSUS
     Dosage: 1 IN 28 D, INTRAVENOUS DRIP
     Route: 041
     Dates: start: 20110729
  4. PERCOCET (OXYCOCET) (PARACETAMOL, OXYCODONE HYDROCHLORIDE) [Concomitant]
  5. PREDNISONE [Concomitant]
  6. NORVASC [Concomitant]
  7. ASPIRIN [Concomitant]

REACTIONS (5)
  - FAECES DISCOLOURED [None]
  - PAIN [None]
  - HEADACHE [None]
  - NAUSEA [None]
  - RHINORRHOEA [None]
